FAERS Safety Report 12439430 (Version 1)
Quarter: 2016Q2

REPORT INFORMATION
  Report Type: Spontaneous
  Country: DE (occurrence: DE)
  Receive Date: 20160606
  Receipt Date: 20160606
  Transmission Date: 20160815
  Serious: Yes (Hospitalization)
  Sender: FDA-Public Use
  Company Number: DE-009507513-1606DEU001351

PATIENT
  Age: 30 Year
  Sex: Male

DRUGS (6)
  1. MIRTAZAPIN STADA [Suspect]
     Active Substance: MIRTAZAPINE
     Dosage: 15 MG EVERY DAY
     Route: 048
     Dates: start: 20141019, end: 20141117
  2. MIRTAZAPIN STADA [Suspect]
     Active Substance: MIRTAZAPINE
     Dosage: 30 MG EVERY DAY
     Route: 048
     Dates: start: 20141118
  3. RISPERDAL [Suspect]
     Active Substance: RISPERIDONE
     Dosage: 1.5 MG EVERY DAY
     Route: 048
     Dates: start: 20141209, end: 20141215
  4. RISPERDAL [Suspect]
     Active Substance: RISPERIDONE
     Dosage: 2 MG EVERY DAY
     Route: 048
     Dates: start: 20141216
  5. MIRTAZAPIN STADA [Suspect]
     Active Substance: MIRTAZAPINE
     Dosage: 7.5 MG EVERY DAY
     Route: 048
     Dates: start: 20141015, end: 20141018
  6. RISPERDAL [Suspect]
     Active Substance: RISPERIDONE
     Dosage: 1 MG EVERY DAY
     Route: 048
     Dates: start: 20141017, end: 20141208

REACTIONS (1)
  - Thyroiditis [Unknown]

NARRATIVE: CASE EVENT DATE: 20150120
